FAERS Safety Report 23228758 (Version 1)
Quarter: 2023Q4

REPORT INFORMATION
  Report Type: Spontaneous
  Country: US (occurrence: None)
  Receive Date: 20231126
  Receipt Date: 20231126
  Transmission Date: 20240109
  Serious: No
  Sender: FDA-Public Use
  Company Number: US-ROCHE-3209259

PATIENT
  Age: 34 Year
  Sex: Female

DRUGS (4)
  1. HERCEPTIN [Suspect]
     Active Substance: TRASTUZUMAB
     Indication: Breast cancer female
     Route: 065
     Dates: start: 20221010
  2. XELODA [Suspect]
     Active Substance: CAPECITABINE
     Indication: Breast cancer female
     Route: 048
     Dates: start: 20221010
  3. TUKYSA [Suspect]
     Active Substance: TUCATINIB
     Indication: Breast cancer female
     Dosage: 150 MG TABLET 1 AND 50 MG TABLET 2
     Route: 065
     Dates: start: 20221010
  4. TUKYSA [Suspect]
     Active Substance: TUCATINIB
     Indication: Breast cancer

REACTIONS (3)
  - Diarrhoea [Recovered/Resolved]
  - Nausea [Unknown]
  - Vomiting [Unknown]

NARRATIVE: CASE EVENT DATE: 20221024
